FAERS Safety Report 5491374-1 (Version None)
Quarter: 2007Q4

REPORT INFORMATION
  Report Type: 
  Country: None (occurrence: None)
  Receive Date: 20071017
  Receipt Date: 20071012
  Transmission Date: 20080405
  Serious: Yes (Death)
  Sender: FDA-Public Use
  Company Number: TCI2007A05308

PATIENT
  Age: 81 Year
  Sex: Male

DRUGS (7)
  1. LEUPROLIDE ACETATE [Suspect]
     Indication: PROSTATE CANCER
     Dosage: 11.25 MG (11.25 MG, 1 IN 12 WK) SUBCUTANEOUS
     Route: 058
     Dates: start: 20070927, end: 20070927
  2. OPALMON (LIMAPROST) (TABLETS) [Concomitant]
  3. GASTER D (FAMOTIDINE) (TABLETS) [Concomitant]
  4. GASTROM (ECABET MONOSODIUM) (GRANULATE) [Concomitant]
  5. AMOBAN (ZOPICLONE) (TABLETS) [Concomitant]
  6. CASODEX [Concomitant]
  7. HARNAL D (TAMSULOSIN HYDROCHLORIDE) (TABLETS) [Concomitant]

REACTIONS (5)
  - ABDOMINAL PAIN LOWER [None]
  - ANAEMIA [None]
  - CARDIAC FAILURE ACUTE [None]
  - DYSURIA [None]
  - SUDDEN DEATH [None]
